FAERS Safety Report 10268180 (Version 1)
Quarter: 2014Q2

REPORT INFORMATION
  Report Type: Spontaneous
  Country: US (occurrence: US)
  Receive Date: 20140630
  Receipt Date: 20140630
  Transmission Date: 20141212
  Serious: No
  Sender: FDA-Public Use
  Company Number: US-009507513-1406USA013272

PATIENT
  Age: 19 Year
  Sex: Female
  Weight: 61.22 kg

DRUGS (1)
  1. NUVARING [Suspect]
     Indication: CONTRACEPTION
     Dosage: 3 WEEKS/1 WEEK OUT
     Route: 067
     Dates: start: 20140525

REACTIONS (3)
  - Chills [Unknown]
  - Metrorrhagia [Unknown]
  - Hot flush [Unknown]
